FAERS Safety Report 4308470-4 (Version None)
Quarter: 2004Q1

REPORT INFORMATION
  Report Type: 
  Country: None (occurrence: None)
  Receive Date: 20040301
  Receipt Date: 20040217
  Transmission Date: 20041129
  Serious: Yes (Hospitalization)
  Sender: FDA-Public Use
  Company Number: FR-ROCHE-359096

PATIENT
  Age: 60 Year
  Sex: Male

DRUGS (2)
  1. APRANAX [Suspect]
     Route: 048
     Dates: start: 20040116
  2. ZOCOR [Concomitant]
     Indication: HYPERCHOLESTEROLAEMIA
     Route: 048

REACTIONS (10)
  - BURNING SENSATION [None]
  - C-REACTIVE PROTEIN INCREASED [None]
  - EPSTEIN-BARR VIRUS ANTIBODY POSITIVE [None]
  - FEELING HOT [None]
  - HEADACHE [None]
  - LOSS OF CONSCIOUSNESS [None]
  - MALAISE [None]
  - PURPURA [None]
  - RASH ERYTHEMATOUS [None]
  - URTICARIA [None]
